FAERS Safety Report 4780243-8 (Version None)
Quarter: 2005Q3

REPORT INFORMATION
  Report Type: 
  Country: None (occurrence: None)
  Receive Date: 20050927
  Receipt Date: 20050819
  Transmission Date: 20060218
  Serious: Yes (Other)
  Sender: FDA-Public Use
  Company Number: US-BRISTOL-MYERS SQUIBB COMPANY-13085394

PATIENT
  Age: 63 Year
  Sex: Male
  Weight: 72 kg

DRUGS (11)
  1. ERBITUX [Suspect]
     Indication: NEOPLASM MALIGNANT
     Dosage: ERBITUX HELD STARTING ON 10-AUG-2005.
     Route: 041
     Dates: start: 20050803, end: 20050803
  2. CARBOPLATIN [Suspect]
     Indication: NEOPLASM MALIGNANT
     Dosage: AUC = 2.  HELD ON 10-AUG-2005.  RE-STARTED ON 17-AUG-2005.
     Route: 042
     Dates: start: 20050803, end: 20050803
  3. PACLITAXEL [Suspect]
     Indication: NEOPLASM MALIGNANT
     Dosage: HELD ON 10-AUG-2005.  RESTARTED 17-AUG-2005.
     Route: 042
     Dates: start: 20050803, end: 20050803
  4. COMPAZINE [Concomitant]
     Indication: VOMITING
     Dates: start: 20050725
  5. FLOMAX [Concomitant]
     Indication: POLLAKIURIA
     Dates: start: 20050101
  6. LACTULOSE [Concomitant]
     Indication: CONSTIPATION
     Dates: start: 20050731, end: 20050913
  7. PRAVACHOL [Concomitant]
     Indication: HYPERCHOLESTEROLAEMIA
     Dates: start: 20000715
  8. WELLBUTRIN [Concomitant]
     Indication: ANXIETY
     Dates: start: 20050107
  9. XANAX [Concomitant]
     Indication: ANXIETY
     Dates: start: 20050725, end: 20050907
  10. ZOFRAN [Concomitant]
     Indication: VOMITING
     Dates: start: 20050725
  11. MULTI-VITAMIN [Concomitant]

REACTIONS (3)
  - DYSPNOEA [None]
  - INTERSTITIAL LUNG DISEASE [None]
  - OXYGEN SATURATION DECREASED [None]
